FAERS Safety Report 19636648 (Version 1)
Quarter: 2021Q3

REPORT INFORMATION
  Report Type: Spontaneous
  Country: US (occurrence: US)
  Receive Date: 20210730
  Receipt Date: 20210730
  Transmission Date: 20211014
  Serious: Yes (Death)
  Sender: FDA-Public Use
  Company Number: None

PATIENT
  Sex: Male
  Weight: 69.3 kg

DRUGS (7)
  1. ONDANSETRON [Concomitant]
     Active Substance: ONDANSETRON
  2. OXALIPLATIN. [Concomitant]
     Active Substance: OXALIPLATIN
  3. MAPAP [Concomitant]
     Active Substance: ACETAMINOPHEN
  4. NYSTATIN. [Concomitant]
     Active Substance: NYSTATIN
  5. XELODA [Suspect]
     Active Substance: CAPECITABINE
     Indication: RECTAL CANCER
     Route: 048
  6. SUCRALFATE. [Concomitant]
     Active Substance: SUCRALFATE
  7. PANTOPRAZOLE [Concomitant]
     Active Substance: PANTOPRAZOLE

REACTIONS (1)
  - Death [None]
